FAERS Safety Report 5473512-X (Version None)
Quarter: 2007Q3

REPORT INFORMATION
  Report Type: 
  Country: None (occurrence: None)
  Receive Date: 20070830
  Receipt Date: 20070103
  Transmission Date: 20080115
  Serious: Yes (Hospitalization)
  Sender: FDA-Public Use
  Company Number: KADN20070004

PATIENT
  Age: 61 Year
  Sex: Female
  Weight: 117.9352 kg

DRUGS (13)
  1. KADIAN [Suspect]
     Indication: BACK PAIN
     Dosage: 1 CAP DAILY, PER ORAL
     Route: 048
     Dates: start: 20061215, end: 20061218
  2. FUROSEMIDE [Concomitant]
  3. NOVOLIN 50/50 [Concomitant]
  4. BUSPIRONE HCL [Concomitant]
  5. TRAMADOL HCL [Concomitant]
  6. ALBUTEROL [Concomitant]
  7. ALBUTEROL [Concomitant]
  8. AMBIEN [Concomitant]
  9. PROTONIX [Concomitant]
  10. EFFEXOR XR [Concomitant]
  11. TIZANIDINE HCL [Concomitant]
  12. LYRICA [Concomitant]
  13. ATROVENT [Concomitant]

REACTIONS (3)
  - ABDOMINAL PAIN [None]
  - HYPOTENSION [None]
  - RESPIRATORY DEPRESSION [None]
